FAERS Safety Report 20003840 (Version 3)
Quarter: 2021Q4

REPORT INFORMATION
  Report Type: Spontaneous
  Country: IN (occurrence: IN)
  Receive Date: 20211027
  Receipt Date: 20211230
  Transmission Date: 20220303
  Serious: Yes (Other)
  Sender: FDA-Public Use
  Company Number: IN-PFIZER INC-202101170512

PATIENT
  Age: 72 Year
  Sex: Female

DRUGS (1)
  1. AROMASIN [Suspect]
     Active Substance: EXEMESTANE
     Indication: Breast cancer metastatic
     Dosage: 25 MG, 1X/DAY
     Route: 048
     Dates: start: 20210827

REACTIONS (8)
  - Cerebrovascular accident [Unknown]
  - Anal abscess [Unknown]
  - Abscess limb [Unknown]
  - Tumour haemorrhage [Unknown]
  - Movement disorder [Unknown]
  - Genital pain [Unknown]
  - Proctalgia [Unknown]
  - Neoplasm progression [Unknown]
